FAERS Safety Report 24165881 (Version 1)
Quarter: 2024Q3

REPORT INFORMATION
  Report Type: Report from Study
  Country: US (occurrence: US)
  Receive Date: 20240802
  Receipt Date: 20240802
  Transmission Date: 20241017
  Serious: Yes (Other)
  Sender: ABBVIE
  Company Number: US-ABBVIE-5847960

PATIENT
  Sex: Male

DRUGS (1)
  1. CREON [Suspect]
     Active Substance: PANCRELIPASE AMYLASE\PANCRELIPASE LIPASE\PANCRELIPASE PROTEASE
     Indication: Product used for unknown indication
     Route: 048
     Dates: start: 20200701

REACTIONS (8)
  - Prostate cancer [Unknown]
  - Hernia [Unknown]
  - Abdominal pain lower [Unknown]
  - Back pain [Unknown]
  - Diverticulum [Unknown]
  - Diverticulitis [Unknown]
  - Pancreatic failure [Unknown]
  - Gastrooesophageal reflux disease [Unknown]
